FAERS Safety Report 7619216-6 (Version None)
Quarter: 2011Q3

REPORT INFORMATION
  Report Type: 
  Country: None (occurrence: None)
  Receive Date: 20110718
  Receipt Date: 20110701
  Transmission Date: 20111222
  Serious: Yes (Hospitalization)
  Sender: FDA-Public Use
  Company Number: PHHY2011AU48103

PATIENT
  Age: 69 Year
  Sex: Female
  Weight: 91 kg

DRUGS (5)
  1. ZOLEDRONOC ACID [Suspect]
     Dosage: UNK UKN, UNK
     Route: 042
     Dates: start: 20110527, end: 20110527
  2. TELMISARTAN [Concomitant]
     Dosage: 80 MG, DAILY
     Route: 048
  3. ACETAMINOPHEN [Concomitant]
     Dosage: UNK
  4. ASPIRIN [Concomitant]
     Dosage: 100 MG, DAILY
     Route: 048
  5. OMEPRAZOLE [Concomitant]
     Dosage: 20 MG, DAILY
     Route: 048

REACTIONS (3)
  - MYOCARDIAL INFARCTION [None]
  - CHEST PAIN [None]
  - CORONARY ARTERY OCCLUSION [None]
